FAERS Safety Report 5832219-7 (Version None)
Quarter: 2008Q3

REPORT INFORMATION
  Report Type: 
  Country: None (occurrence: None)
  Receive Date: 20080730
  Receipt Date: 20080715
  Transmission Date: 20090109
  Serious: Yes (Other)
  Sender: FDA-Public Use
  Company Number: PHHO2008NL07424

PATIENT
  Age: 82 Year
  Sex: Female
  Weight: 69.1282 kg

DRUGS (4)
  1. VISUDYNE [Suspect]
     Indication: CHOROIDAL NEOVASCULARISATION
     Dates: start: 20080102
  2. VISUDYNE [Suspect]
     Indication: CHOROIDAL NEOVASCULARISATION
     Dosage: 6 MG DAILY IV
     Route: 042
     Dates: start: 20071023, end: 20071023
  3. LUCENTIS [Suspect]
     Indication: CHOROIDAL NEOVASCULARISATION
     Dates: start: 20080102
  4. LUCENTIS [Suspect]
     Indication: CHOROIDAL NEOVASCULARISATION
     Dosage: 0.5 MG DAILY EY
     Dates: start: 20071023, end: 20071023

REACTIONS (6)
  - DISEASE PROGRESSION [None]
  - DRUG INEFFECTIVE [None]
  - HYPOPERFUSION [None]
  - MACULAR HOLE [None]
  - RETINAL CYST [None]
  - RETINAL DEGENERATION [None]
